FAERS Safety Report 5947622-4 (Version None)
Quarter: 2008Q4

REPORT INFORMATION
  Report Type: 
  Country: None (occurrence: None)
  Receive Date: 20081107
  Receipt Date: 20081026
  Transmission Date: 20090506
  Serious: Yes (Hospitalization)
  Sender: FDA-Public Use
  Company Number: 1022556-2008-00661

PATIENT
  Age: 9 Year
  Sex: Female
  Weight: 27.2158 kg

DRUGS (2)
  1. ACT RESTORING MOUTHWASH COOL SPLASH MINT [Suspect]
     Indication: DENTAL DISORDER PROPHYLAXIS
     Dosage: 10 ML, 1 X, ORAL RINSE
  2. ZYRTEC [Concomitant]

REACTIONS (2)
  - LARYNGOSPASM [None]
  - OESOPHAGITIS [None]
